FAERS Safety Report 14716889 (Version 1)
Quarter: 2018Q2

REPORT INFORMATION
  Report Type: Spontaneous
  Country: US (occurrence: US)
  Receive Date: 20180404
  Receipt Date: 20180404
  Transmission Date: 20180711
  Serious: No
  Sender: FDA-Public Use
  Company Number: US-TAKEDA-2018TUS008077

PATIENT
  Sex: Female
  Weight: 72.56 kg

DRUGS (1)
  1. DEXILANT [Suspect]
     Active Substance: DEXLANSOPRAZOLE
     Indication: GASTROOESOPHAGEAL REFLUX DISEASE
     Dosage: 60 MG, QD
     Route: 048

REACTIONS (5)
  - Joint swelling [Not Recovered/Not Resolved]
  - Incorrect drug administration duration [Unknown]
  - Nasopharyngitis [Not Recovered/Not Resolved]
  - Rash [Recovering/Resolving]
  - Skin laxity [Not Recovered/Not Resolved]
